FAERS Safety Report 8764943 (Version 1)
Quarter: 2012Q4

REPORT INFORMATION
  Report Type: 
  Country: DE (occurrence: GB)
  Receive Date: 20120903
  Receipt Date: 20120903
  Transmission Date: 20130627
  Serious: Yes (Other)
  Sender: FDA-Public Use
  Company Number: GB-BRISTOL-MYERS SQUIBB COMPANY-16903163

PATIENT
  Age: 63 Year
  Sex: Male
  Weight: 91 kg

DRUGS (18)
  1. METFORMIN HCL [Suspect]
     Dates: start: 20120424
  2. ALLOPURINOL [Concomitant]
     Dates: start: 20120424
  3. AMITRIPTYLINE HCL [Concomitant]
     Dates: start: 20120614
  4. AMLODIPINE [Concomitant]
     Dates: start: 20120424
  5. CETRIZINE [Concomitant]
     Dates: start: 20120424
  6. CO-CODAMOL [Concomitant]
     Dates: start: 20120606
  7. DOXAZOSIN [Concomitant]
     Dates: start: 20120424
  8. DOXYCYCLINE [Concomitant]
     Dates: start: 20120627, end: 20120705
  9. GAVISCON [Concomitant]
     Dates: start: 20120424
  10. GLICLAZIDE [Concomitant]
     Dates: start: 20120424
  11. GLYCERYL TRINITRATE [Concomitant]
     Dates: start: 20120606
  12. MOMETASONE FUROATE [Concomitant]
     Dates: start: 20120424
  13. PERINDOPRIL ERBUMINE [Concomitant]
     Dates: start: 20120424
  14. SALBUTAMOL [Concomitant]
     Dates: start: 20120424
  15. SERETIDE [Concomitant]
     Dates: start: 20120424
  16. SIMVASTATIN [Concomitant]
     Dates: start: 20120424
  17. TIOTROPIUM BROMIDE [Concomitant]
     Dates: start: 20120424
  18. OMEPRAZOLE [Concomitant]
     Dates: start: 20120424

REACTIONS (1)
  - Hypersensitivity [Unknown]
